FAERS Safety Report 18224418 (Version 1)
Quarter: 2020Q3

REPORT INFORMATION
  Report Type: Spontaneous
  Country: CH (occurrence: CH)
  Receive Date: 20200902
  Receipt Date: 20200902
  Transmission Date: 20201103
  Serious: Yes (Hospitalization)
  Sender: FDA-Public Use
  Company Number: CH-ANIPHARMA-2020-CH-000028

PATIENT
  Age: 78 Year
  Sex: Female

DRUGS (26)
  1. EUTHYROX [Concomitant]
     Active Substance: LEVOTHYROXINE SODIUM
     Route: 065
  2. MYCOSTATINE [Concomitant]
     Active Substance: NYSTATIN
     Route: 065
     Dates: start: 20200722
  3. CO?DIOVAN [Concomitant]
     Active Substance: HYDROCHLOROTHIAZIDE\VALSARTAN
     Route: 065
     Dates: end: 20200721
  4. CALCIMAGON?D3 [Concomitant]
     Active Substance: CALCIUM\CHOLECALCIFEROL
     Route: 065
  5. NEXIUM?MUPS [Concomitant]
     Active Substance: ESOMEPRAZOLE
     Route: 065
     Dates: start: 20200722
  6. ATACAND [Suspect]
     Active Substance: CANDESARTAN CILEXETIL
     Indication: HYPERTENSION
     Dosage: IN TOTAL, 16 MG
     Route: 048
     Dates: start: 20200729, end: 20200729
  7. LACRYVISC [Concomitant]
     Active Substance: CARBOMER
     Route: 065
     Dates: start: 20200727
  8. XARELTO [Concomitant]
     Active Substance: RIVAROXABAN
     Route: 065
     Dates: start: 20200722
  9. ALPHAGAN P [Concomitant]
     Active Substance: BRIMONIDINE TARTRATE
     Route: 065
     Dates: start: 20200722
  10. EZETROL [Concomitant]
     Active Substance: EZETIMIBE
     Route: 065
  11. SORBITOL. [Concomitant]
     Active Substance: SORBITOL
     Route: 065
  12. TORASEMIDE [Concomitant]
     Active Substance: TORSEMIDE
     Route: 065
     Dates: end: 20200721
  13. AMLODIPINE [Concomitant]
     Active Substance: AMLODIPINE BESYLATE
     Route: 065
     Dates: start: 20200723, end: 20200723
  14. TARGIN [Concomitant]
     Active Substance: NALOXONE HYDROCHLORIDE\OXYCODONE HYDROCHLORIDE
     Route: 065
     Dates: end: 20200721
  15. LAXOBERON [Concomitant]
     Active Substance: SODIUM PICOSULFATE
     Route: 065
  16. NO MATCH [Concomitant]
     Active Substance: UNSPECIFIED INGREDIENT
     Route: 065
     Dates: end: 20200721
  17. PASPERTIN [Concomitant]
     Route: 065
     Dates: end: 20200721
  18. IOPIDINE [Concomitant]
     Active Substance: APRACLONIDINE HYDROCHLORIDE
     Route: 065
     Dates: start: 20200722
  19. HYALURONIC ACID [Concomitant]
     Active Substance: HYALURONIC ACID
     Route: 065
     Dates: end: 20200721
  20. MONOPROST [Concomitant]
     Active Substance: LATANOPROST
     Route: 065
     Dates: start: 20200722
  21. PLUS KALIUM [Concomitant]
     Active Substance: POTASSIUM CHLORIDE
     Route: 065
     Dates: start: 20200729, end: 20200729
  22. RISPERDAL [Concomitant]
     Active Substance: RISPERIDONE
     Route: 065
  23. CANDESARTAN CILEXETIL AND HYDROCHLOROTHIAZIDE [Suspect]
     Active Substance: CANDESARTAN CILEXETIL\HYDROCHLOROTHIAZIDE
     Indication: HYPERTENSION
     Route: 048
     Dates: start: 20200722, end: 20200728
  24. DAFALGAN [Suspect]
     Active Substance: ACETAMINOPHEN
     Dosage: 1 G UNK / DOSE TEXT: IN TOTAL, 4 G
     Route: 048
     Dates: end: 20200721
  25. TRAMADOL. [Suspect]
     Active Substance: TRAMADOL
     Dosage: IN TOTAL, 40 MG
     Route: 048
     Dates: start: 20200721, end: 20200721
  26. ASPIRIN CARDIO [Concomitant]
     Active Substance: ASPIRIN
     Route: 065
     Dates: end: 20200721

REACTIONS (2)
  - Drug-induced liver injury [Unknown]
  - Liver function test abnormal [Recovering/Resolving]

NARRATIVE: CASE EVENT DATE: 20200721
